FAERS Safety Report 15301227 (Version 1)
Quarter: 2018Q3

REPORT INFORMATION
  Report Type: Spontaneous
  Country: BE (occurrence: BE)
  Receive Date: 20180821
  Receipt Date: 20180821
  Transmission Date: 20181010
  Serious: Yes (Other)
  Sender: FDA-Public Use
  Company Number: BE-PFIZER INC-2018330158

PATIENT
  Sex: Female

DRUGS (2)
  1. MOXIFLOXACIN. [Concomitant]
     Active Substance: MOXIFLOXACIN
     Dosage: 1 DF, UNK
     Route: 048
  2. MEDROL [Suspect]
     Active Substance: METHYLPREDNISOLONE
     Dosage: 1 DF (DOSAGE FORM), SINGLE
     Route: 048

REACTIONS (4)
  - Paresis [Unknown]
  - Paralysis [Unknown]
  - Hypotonia [Unknown]
  - Motor dysfunction [Unknown]
